FAERS Safety Report 15048803 (Version 1)
Quarter: 2018Q2

REPORT INFORMATION
  Report Type: Spontaneous
  Country: US (occurrence: US)
  Receive Date: 20180622
  Receipt Date: 20180622
  Transmission Date: 20180711
  Serious: No
  Sender: FDA-Public Use
  Company Number: US-PFIZER INC-2018250669

PATIENT
  Sex: Female

DRUGS (3)
  1. LATANOPROST. [Suspect]
     Active Substance: LATANOPROST
     Indication: GLAUCOMA
     Dosage: UNK
     Route: 047
  2. TIMOLOL. [Suspect]
     Active Substance: TIMOLOL
     Dosage: UNK
     Route: 047
  3. LATANOPROST. [Suspect]
     Active Substance: LATANOPROST
     Indication: HYPERTENSION
     Dosage: UNK
     Route: 047

REACTIONS (1)
  - Foreign body in eye [Unknown]
